FAERS Safety Report 25531563 (Version 1)
Quarter: 2025Q3

REPORT INFORMATION
  Report Type: Report from Study
  Country: EU (occurrence: EU)
  Receive Date: 20250709
  Receipt Date: 20250709
  Transmission Date: 20251021
  Serious: Yes (Hospitalization, Other)
  Sender: ABBVIE
  Company Number: EU-ABBVIE-6359330

PATIENT
  Age: 83 Year
  Sex: Male

DRUGS (1)
  1. SKYRIZI [Suspect]
     Active Substance: RISANKIZUMAB-RZAA
     Indication: Psoriasis
     Dosage: 150 MG / MONTH?FORM STRENGTH: 150 MILLIGRAM
     Route: 058
     Dates: start: 20220608, end: 20250611

REACTIONS (3)
  - Arteriosclerosis [Unknown]
  - Arterial occlusive disease [Unknown]
  - Peripheral artery bypass [Recovered/Resolved]

NARRATIVE: CASE EVENT DATE: 20250513
